FAERS Safety Report 9162653 (Version 1)
Quarter: 2013Q1

REPORT INFORMATION
  Report Type: Spontaneous
  Country: DK (occurrence: None)
  Receive Date: 20130204
  Receipt Date: 20130204
  Transmission Date: 20140127
  Serious: Yes (Hospitalization)
  Sender: FDA-Public Use
  Company Number: 2013MA000736

PATIENT
  Age: 73 Year
  Sex: Male

DRUGS (12)
  1. BUTALBITAL, ASPIRIN (ACETYLSALICYLIC ACID) AND CAFFEINE TABLETS USP 50MG/325MG/40MG (AELLC) (BUTALBITAL, ASPIRIN AND CAFFEINE) [Suspect]
     Indication: PRODUCT USED FOR UNKNOWN INDICATION
     Route: 048
     Dates: start: 20120101, end: 20121221
  2. CLOPIDOGREL (CLOPIDOGREL) [Suspect]
     Indication: PRODUCT USED FOR UNKNOWN INDICATION
     Route: 048
     Dates: start: 20120101, end: 20121221
  3. NOVONORM [Concomitant]
  4. FLUIMUCIL [Concomitant]
  5. CARDIAZOL-PARACODINA [Concomitant]
  6. DIGOXIN [Concomitant]
  7. FUROSEMIDE [Concomitant]
  8. ESOMEPRAZOLE [Concomitant]
  9. BISOPROLOL [Concomitant]
  10. CITALOPRAM [Concomitant]
  11. ROSUVASTATIN [Concomitant]
  12. COUMADIN [Suspect]
     Indication: PRODUCT USED FOR UNKNOWN INDICATION
     Route: 048
     Dates: start: 20120101, end: 20121221

REACTIONS (1)
  - Haemoptysis [None]
